FAERS Safety Report 7693040-0 (Version None)
Quarter: 2011Q3

REPORT INFORMATION
  Report Type: 
  Country: None (occurrence: None)
  Receive Date: 20110819
  Receipt Date: 20110804
  Transmission Date: 20111222
  Serious: Yes (Hospitalization)
  Sender: FDA-Public Use
  Company Number: US-UCBSA-037235

PATIENT
  Sex: Female
  Weight: 45.4 kg

DRUGS (27)
  1. ACIDOPHILUS [Concomitant]
     Indication: CROHN'S DISEASE
  2. ACIDOPHILUS [Concomitant]
  3. TRAMADOL HCL [Concomitant]
     Dosage: 100 MG TAB SR 24 HOUR
  4. NEXIUM [Concomitant]
     Indication: CROHN'S DISEASE
  5. CALCIUM CARBONATE [Concomitant]
     Indication: CROHN'S DISEASE
  6. PROVENTIL IN [Concomitant]
     Dosage: 2 SPRAYS AS NEEDED
  7. PEPCID [Concomitant]
     Indication: CROHN'S DISEASE
  8. CALCIUM 500+D [Concomitant]
  9. NARCO [Concomitant]
     Dosage: 10-325 MG AS NEEDED
  10. FOLIC ACID [Concomitant]
  11. FERROUS SULFATE TAB [Concomitant]
     Indication: CROHN'S DISEASE
  12. MULTI-VITAMIN OR [Concomitant]
  13. ZOFRAN [Concomitant]
  14. MERCAPTOPURINE [Concomitant]
     Indication: CROHN'S DISEASE
     Dates: start: 19920101, end: 19920101
  15. CLARITIN-D 24 HOUR [Concomitant]
  16. MAGNESIUM OXIDE [Concomitant]
     Indication: CROHN'S DISEASE
  17. ASTELIN [Concomitant]
     Dosage: 137 MCG/SPRAY SOLUTION
  18. VENOFER [Concomitant]
     Dosage: 20 MG/ML
     Route: 042
  19. CIMZIA [Suspect]
     Indication: CROHN'S DISEASE
     Route: 058
     Dates: start: 20110302, end: 20110101
  20. VITAMIN B-12 [Concomitant]
     Indication: CROHN'S DISEASE
  21. MERCAPTOPURINE [Concomitant]
     Dates: start: 19990101
  22. FLEXERIL [Concomitant]
     Dosage: AS NEEDED
  23. NUVARING [Concomitant]
     Dosage: 0.12-0.015 MG/24 HR RING,  1 EVERY 3 WEEKS AS DIRECTED, REMOVE FOR 1 WEEK
  24. FENTANYL [Concomitant]
     Dosage: 50 MCG/HR PATCH 72 HR
  25. PURINETHOL [Concomitant]
  26. SINGULAIR [Concomitant]
     Dosage: EVENING
  27. VITAMIN D [Concomitant]
     Dosage: 50000 UNIT CAP

REACTIONS (1)
  - CELLULITIS STAPHYLOCOCCAL [None]
